FAERS Safety Report 16819393 (Version 3)
Quarter: 2022Q1

REPORT INFORMATION
  Report Type: Report from Study
  Country: CA (occurrence: CA)
  Receive Date: 20190917
  Receipt Date: 20220214
  Transmission Date: 20220423
  Serious: Yes (Other)
  Sender: FDA-Public Use
  Company Number: CA-JNJFOC-20190914783

PATIENT
  Age: 48 Year
  Sex: Female
  Weight: 74.910 kg

DRUGS (3)
  1. REMICADE [Suspect]
     Active Substance: INFLIXIMAB
     Indication: Colitis ulcerative
     Dosage: THERAPY DATE ALSO REPORTED AS 27-MAR-2018
     Route: 042
     Dates: start: 20180312, end: 20190905
  2. REMICADE [Suspect]
     Active Substance: INFLIXIMAB
     Dosage: DOSE: 10 (UNIT NOT PROVIDED)
     Route: 042
  3. REMICADE [Suspect]
     Active Substance: INFLIXIMAB
     Dosage: ON 09-FEB-2022, THE PATIENT RECEIVED 18TH DOSE OF 750 MG
     Route: 042

REACTIONS (3)
  - Basal cell carcinoma [Unknown]
  - Haematochezia [Unknown]
  - Frequent bowel movements [Unknown]

NARRATIVE: CASE EVENT DATE: 20220208
